FAERS Safety Report 5689730-1 (Version None)
Quarter: 2008Q1

REPORT INFORMATION
  Report Type: 
  Country: None (occurrence: None)
  Receive Date: 20080328
  Receipt Date: 20080314
  Transmission Date: 20080703
  Serious: Yes (Other)
  Sender: FDA-Public Use
  Company Number: 2008S1004426

PATIENT
  Sex: Male

DRUGS (5)
  1. CITALOPRAM HYDROBROMIDE [Suspect]
     Indication: INTENTIONAL OVERDOSE
     Dosage: ORAL
     Route: 048
  2. ZOLPIDEM TARTRATE [Suspect]
     Indication: INTENTIONAL OVERDOSE
  3. ZOPICLONE (ZOPICLONE) [Suspect]
     Indication: INTENTIONAL OVERDOSE
  4. OXAZEPAM [Suspect]
     Indication: INTENTIONAL OVERDOSE
  5. VALIUM [Suspect]
     Indication: INTENTIONAL OVERDOSE

REACTIONS (3)
  - MULTIPLE DRUG OVERDOSE INTENTIONAL [None]
  - SOMNOLENCE [None]
  - SUICIDE ATTEMPT [None]
